FAERS Safety Report 15995557 (Version 3)
Quarter: 2021Q1

REPORT INFORMATION
  Report Type: Spontaneous
  Country: US (occurrence: US)
  Receive Date: 20190222
  Receipt Date: 20210304
  Transmission Date: 20210419
  Serious: Yes (Other)
  Sender: FDA-Public Use
  Company Number: PHEH2019US007689

PATIENT
  Sex: Female

DRUGS (1)
  1. TASIGNA [Suspect]
     Active Substance: NILOTINIB
     Indication: CHRONIC MYELOID LEUKAEMIA
     Dosage: 2 DF, BID
     Route: 048
     Dates: start: 20091006, end: 201502

REACTIONS (22)
  - Anxiety [Unknown]
  - Aortic arteriosclerosis [Unknown]
  - Injury [Unknown]
  - Hyponatraemia [Unknown]
  - Emotional distress [Unknown]
  - Renal artery stenosis [Unknown]
  - Mitral valve incompetence [Unknown]
  - Peripheral artery stenosis [Unknown]
  - Abdominal discomfort [Unknown]
  - Arteriosclerosis [Unknown]
  - Mitral valve calcification [Unknown]
  - Microalbuminuria [Unknown]
  - Osteoarthritis [Unknown]
  - Cardiomegaly [Unknown]
  - Intermittent claudication [Unknown]
  - Pain [Unknown]
  - Aortic aneurysm [Unknown]
  - Peripheral vascular disorder [Unknown]
  - Dyslipidaemia [Unknown]
  - Angina pectoris [Unknown]
  - Pain in extremity [Unknown]
  - Gastrooesophageal reflux disease [Unknown]
